FAERS Safety Report 9097079 (Version 1)
Quarter: 2013Q1

REPORT INFORMATION
  Report Type: Spontaneous
  Country: IT (occurrence: None)
  Receive Date: 20130123
  Receipt Date: 20130123
  Transmission Date: 20140127
  Serious: Yes (Hospitalization)
  Sender: FDA-Public Use
  Company Number: 2013-00644

PATIENT
  Age: 57 Year
  Sex: Female

DRUGS (5)
  1. LORAZEPAM (LORAZEPAM) [Concomitant]
  2. OMEPRAZOLE (OMEPRAZOLE) [Concomitant]
  3. LOSARTAN POTASSIUM [Suspect]
     Indication: HYPERTENSION
     Route: 048
     Dates: start: 20120811, end: 20121221
  4. COUMADIN   /00014802/ [Suspect]
     Indication: VERTEBRAL ARTERY DISSECTION
     Route: 048
     Dates: start: 20120811, end: 20121221
  5. SERTRALINE (SERTRALINE) [Concomitant]

REACTIONS (2)
  - International normalised ratio increased [None]
  - Hypotension [None]
